FAERS Safety Report 6701961-8 (Version None)
Quarter: 2010Q2

REPORT INFORMATION
  Report Type: 
  Country: None (occurrence: None)
  Receive Date: 20100429
  Receipt Date: 20100421
  Transmission Date: 20101027
  Serious: Yes (Other)
  Sender: FDA-Public Use
  Company Number: CA-ROCHE-643465

PATIENT
  Sex: Female
  Weight: 57 kg

DRUGS (10)
  1. BEVACIZUMAB [Suspect]
     Dosage: DOSE REPORTED: 421. FREQUENCY: 3 WEEKLY PER PROTOCOL. LAST DOSE: 21 AUGUST 2008.
     Route: 042
     Dates: start: 20070814
  2. CARBOPLATIN [Suspect]
     Dosage: DOSE REPORTED: 344. LAST DOSE: 29 NOVEMBER 2007.
     Route: 042
     Dates: start: 20070814
  3. PACLITAXEL [Suspect]
     Dosage: DOSE REPORTED: 263. FORM - INFUSION PER PROTOCOL. LAST DOSE ON: 29 NOVEMBER 2007.
     Route: 042
     Dates: start: 20070814
  4. BARIUM [Concomitant]
     Dosage: DRUG NAME REPORTED: BARIUM ENEMA. TDD: NA.
     Route: 050
     Dates: start: 20081106, end: 20081106
  5. ROSUVASTATIN [Concomitant]
     Dosage: TDD REPORTED: 10.
     Route: 048
     Dates: end: 20090306
  6. ESOMEPRAZOLE [Concomitant]
     Dosage: TDD REPORTED: 40.
     Route: 048
     Dates: end: 20090306
  7. ACETYLSALICYLIC ACID [Concomitant]
     Dosage: DOSE REPORTED: 81.
     Route: 048
     Dates: end: 20090306
  8. FERROUS FUMARATE [Concomitant]
     Dosage: DOSE REPORTED: 300.
     Route: 048
     Dates: start: 20081118, end: 20090306
  9. PREDNISONE [Concomitant]
     Dosage: DOSE REPORTED: 50.
     Route: 048
     Dates: end: 20090306
  10. HYDROCHLOROTHIAZIDE [Concomitant]
     Dosage: DOSE REPORTED: 50.
     Route: 048
     Dates: start: 19980101, end: 20090306

REACTIONS (1)
  - MYELODYSPLASTIC SYNDROME [None]
